FAERS Safety Report 9647548 (Version 1)
Quarter: 2013Q4

REPORT INFORMATION
  Report Type: Spontaneous
  Country: US (occurrence: US)
  Receive Date: 20131028
  Receipt Date: 20131028
  Transmission Date: 20140711
  Serious: No
  Sender: FDA-Public Use
  Company Number: US-BIOGENIDEC-2013BI098695

PATIENT
  Sex: Female

DRUGS (1)
  1. AVONEX [Suspect]
     Indication: MULTIPLE SCLEROSIS
     Route: 030
     Dates: start: 20130928

REACTIONS (4)
  - Trismus [Recovered/Resolved]
  - Inappropriate schedule of drug administration [Unknown]
  - Muscle spasms [Recovered/Resolved]
  - Vomiting [Recovered/Resolved]
